FAERS Safety Report 8218600-X (Version None)
Quarter: 2012Q1

REPORT INFORMATION
  Report Type: 
  Country: None (occurrence: None)
  Receive Date: 20120306
  Receipt Date: 20110316
  Transmission Date: 20120608
  Serious: Yes (Other)
  Sender: FDA-Public Use
  Company Number: US-005990

PATIENT
  Age: 44 Year
  Sex: Female
  Weight: 81.8 kg

DRUGS (4)
  1. ISOVUE-370 [Suspect]
     Indication: COMPUTERISED TOMOGRAM
     Dosage: 100ML ONCE  INTRAVENOUS (NOT OTHERWISE SPECIFIED)
     Route: 042
     Dates: start: 20110315, end: 20110315
  2. ISOVUE-370 [Suspect]
     Indication: BREAST RECONSTRUCTION
     Dosage: 100ML ONCE  INTRAVENOUS (NOT OTHERWISE SPECIFIED)
     Route: 042
     Dates: start: 20110315, end: 20110315
  3. BENADRYL (DKPHENHYDRAMINE HYDROCHLORIDE) [Concomitant]
  4. PREDNISONE TAB [Concomitant]

REACTIONS (1)
  - DYSPNOEA [None]
